FAERS Safety Report 23479609 (Version 1)
Quarter: 2024Q1

REPORT INFORMATION
  Report Type: Spontaneous
  Country: CN (occurrence: CN)
  Receive Date: 20240205
  Receipt Date: 20240205
  Transmission Date: 20240409
  Serious: Yes (Other)
  Sender: FDA-Public Use
  Company Number: CN-002147023-NVSC2024CN023601

PATIENT

DRUGS (1)
  1. SACUBITRIL\VALSARTAN [Suspect]
     Active Substance: SACUBITRIL\VALSARTAN
     Indication: Acute myocardial infarction
     Dosage: 25 - 50 MG/TIME, ADJUSTABLE DOSE WAS 100 - 200 MG/TIME, TWICE A DAY
     Route: 065

REACTIONS (2)
  - Cardiac failure [Unknown]
  - Product use in unapproved indication [Unknown]
